FAERS Safety Report 12402732 (Version 1)
Quarter: 2016Q2

REPORT INFORMATION
  Report Type: Spontaneous
  Country: GB (occurrence: GB)
  Receive Date: 20160525
  Receipt Date: 20160525
  Transmission Date: 20160815
  Serious: Yes (Other)
  Sender: FDA-Public Use
  Company Number: GB-ACCORD-040732

PATIENT
  Age: 34 Year
  Sex: Female
  Weight: 62 kg

DRUGS (2)
  1. AMITRIPTYLINE [Suspect]
     Active Substance: AMITRIPTYLINE
     Indication: INSOMNIA
     Dosage: 10-20 MG
     Route: 048
     Dates: start: 20160426, end: 20160430
  2. FLUOXETINE [Concomitant]
     Active Substance: FLUOXETINE HYDROCHLORIDE

REACTIONS (6)
  - Feeling hot [Unknown]
  - Monoplegia [Recovered/Resolved]
  - Palpitations [Recovering/Resolving]
  - Dizziness [Recovered/Resolved]
  - Anxiety [Recovered/Resolved with Sequelae]
  - Dissociation [Recovered/Resolved]

NARRATIVE: CASE EVENT DATE: 20160426
